FAERS Safety Report 15267564 (Version 1)
Quarter: 2018Q3

REPORT INFORMATION
  Report Type: Spontaneous
  Country: US (occurrence: US)
  Receive Date: 20180724
  Receipt Date: 20180724
  Transmission Date: 20181010
  Serious: Yes (Other)
  Sender: FDA-Public Use
  Company Number: None

PATIENT
  Age: 43 Year
  Sex: Female
  Weight: 94.5 kg

DRUGS (7)
  1. TRIAZALOM [Concomitant]
  2. ALKA?SELTZER PLUS MAXIMUM STRENGTH DAY AND NIGHT COLD AND FLU [Suspect]
     Active Substance: ACETAMINOPHEN\DEXTROMETHORPHAN HYDROBROMIDE\DOXYLAMINE SUCCINATE\PHENYLEPHRINE HYDROCHLORIDE
     Indication: INFLUENZA
     Dosage: ?          OTHER STRENGTH:LIQUID GELS;QUANTITY:2 CAPSULE(S);?
     Route: 048
     Dates: start: 20180719, end: 20180720
  3. BIOTIN [Concomitant]
     Active Substance: BIOTIN
  4. ALKA?SELTZER PLUS MAXIMUM STRENGTH DAY AND NIGHT COLD AND FLU [Suspect]
     Active Substance: ACETAMINOPHEN\DEXTROMETHORPHAN HYDROBROMIDE\DOXYLAMINE SUCCINATE\PHENYLEPHRINE HYDROCHLORIDE
     Indication: NASOPHARYNGITIS
     Dosage: ?          OTHER STRENGTH:LIQUID GELS;QUANTITY:2 CAPSULE(S);?
     Route: 048
     Dates: start: 20180719, end: 20180720
  5. AMITRIPTYLINE [Concomitant]
     Active Substance: AMITRIPTYLINE
  6. BUPROPION. [Concomitant]
     Active Substance: BUPROPION
  7. FLINSTONES COMPLETE VITAMINS [Concomitant]

REACTIONS (9)
  - Dry mouth [None]
  - Loss of personal independence in daily activities [None]
  - Euphoric mood [None]
  - Thinking abnormal [None]
  - Speech disorder [None]
  - Dizziness [None]
  - Feeling abnormal [None]
  - Vision blurred [None]
  - Road traffic accident [None]

NARRATIVE: CASE EVENT DATE: 20180720
